FAERS Safety Report 22368620 (Version 1)
Quarter: 2023Q2

REPORT INFORMATION
  Report Type: Spontaneous
  Country: US (occurrence: US)
  Receive Date: 20230525
  Receipt Date: 20230525
  Transmission Date: 20230722
  Serious: No
  Sender: FDA-Public Use
  Company Number: US-BRISTOL-MYERS SQUIBB COMPANY-2023-073468

PATIENT
  Sex: Female

DRUGS (1)
  1. THALOMID [Suspect]
     Active Substance: THALIDOMIDE
     Indication: Skin disorder
     Route: 048
     Dates: start: 20230509, end: 20230523

REACTIONS (3)
  - Pruritus [Unknown]
  - Peripheral swelling [Unknown]
  - Off label use [Unknown]
